FAERS Safety Report 5361950-5 (Version None)
Quarter: 2007Q2

REPORT INFORMATION
  Report Type: 
  Country: None (occurrence: None)
  Receive Date: 20070615
  Receipt Date: 20070615
  Transmission Date: 20071010
  Serious: Yes (Other)
  Sender: FDA-Public Use
  Company Number: None

PATIENT
  Age: 53 Year
  Sex: Female

DRUGS (10)
  1. FLUCONAZOLE [Suspect]
     Dosage: 100 MG TABS
     Dates: start: 20050807, end: 20050820
  2. ADVAIR DISKUS 100/50 [Concomitant]
  3. ALBUTEROL [Concomitant]
  4. VITAMIN B COMPLEX CAP [Concomitant]
  5. CLARITIN-D [Concomitant]
  6. GINSING [Concomitant]
  7. OLAY VITAMINS [Concomitant]
  8. TYLENOL [Concomitant]
  9. CALCIUM CHLORIDE [Concomitant]
  10. SOBE GREEN TEA DRINK [Concomitant]

REACTIONS (6)
  - ANOREXIA [None]
  - CHROMATURIA [None]
  - JAUNDICE [None]
  - NAUSEA [None]
  - PRURITUS [None]
  - RASH [None]
